FAERS Safety Report 21021989 (Version 1)
Quarter: 2022Q2

REPORT INFORMATION
  Report Type: Spontaneous
  Country: US (occurrence: US)
  Receive Date: 20220629
  Receipt Date: 20220629
  Transmission Date: 20220720
  Serious: Yes (Hospitalization, Other)
  Sender: FDA-Public Use
  Company Number: US-MLMSERVICE-20220610-3611385-1

PATIENT

DRUGS (1)
  1. MOMETASONE FUROATE [Suspect]
     Active Substance: MOMETASONE FUROATE
     Indication: Sinusitis
     Dosage: UNK
     Route: 065

REACTIONS (3)
  - Soft tissue necrosis [Recovered/Resolved]
  - Aspergillus infection [Recovered/Resolved]
  - Sinusitis fungal [Recovered/Resolved]
